FAERS Safety Report 13939778 (Version 1)
Quarter: 2017Q3

REPORT INFORMATION
  Report Type: Spontaneous
  Country: US (occurrence: None)
  Receive Date: 20170906
  Receipt Date: 20170906
  Transmission Date: 20171127
  Serious: No
  Sender: FDA-Public Use
  Company Number: None

PATIENT
  Age: 63 Year
  Sex: Female
  Weight: 90.72 kg

DRUGS (9)
  1. ALLOPURINOL. [Concomitant]
     Active Substance: ALLOPURINOL
  2. CENTRUM VITS [Concomitant]
  3. LOSARTAN-POTASSIUM 50MG PER TABLET [Suspect]
     Active Substance: LOSARTAN\LOSARTAN POTASSIUM
     Indication: HYPERTENSION
     Dosage: 50 MG 2 PILLS TWICE DAILY BY MOUITH
     Route: 048
     Dates: start: 201611, end: 20170825
  4. SAVELLA [Concomitant]
     Active Substance: MILNACIPRAN HYDROCHLORIDE
  5. VITAMIN D2 [Concomitant]
     Active Substance: ERGOCALCIFEROL
  6. AMBIEN [Concomitant]
     Active Substance: ZOLPIDEM TARTRATE
  7. METFORMIN [Concomitant]
     Active Substance: METFORMIN HYDROCHLORIDE
  8. NORVASIC [Concomitant]
  9. BABY ASPIRIN [Concomitant]
     Active Substance: ASPIRIN

REACTIONS (6)
  - Functional gastrointestinal disorder [None]
  - Gastrointestinal wall thickening [None]
  - Gastrointestinal stenosis [None]
  - Pain [None]
  - Abdominal pain upper [None]
  - Diarrhoea [None]

NARRATIVE: CASE EVENT DATE: 20170630
